FAERS Safety Report 9662906 (Version 1)
Quarter: 2013Q4

REPORT INFORMATION
  Report Type: Spontaneous
  Country: US (occurrence: US)
  Receive Date: 20131031
  Receipt Date: 20131031
  Transmission Date: 20140711
  Serious: No
  Sender: FDA-Public Use
  Company Number: US-PURDUE-USA-2011-0074470

PATIENT
  Sex: Female

DRUGS (1)
  1. OXYCONTIN (NDA 22-272) [Suspect]
     Indication: PAIN
     Dosage: 160 MG, BID
     Dates: start: 201103

REACTIONS (5)
  - Abdominal distension [Unknown]
  - Gastric disorder [Unknown]
  - Rash [Unknown]
  - Abdominal pain [Unknown]
  - Drug effect decreased [Unknown]
